FAERS Safety Report 21156145 (Version 1)
Quarter: 2022Q3

REPORT INFORMATION
  Report Type: Spontaneous
  Country: US (occurrence: None)
  Receive Date: 20220731
  Receipt Date: 20220731
  Transmission Date: 20221027
  Serious: Yes (Other)
  Sender: FDA-Public Use
  Company Number: None

PATIENT
  Age: 24 Year
  Sex: Female
  Weight: 49.5 kg

DRUGS (2)
  1. MAGNESIUM CITRATE SALINE LAXATIVE [Suspect]
     Active Substance: MAGNESIUM CITRATE
     Indication: Constipation
     Dosage: OTHER QUANTITY : 4 OUNCE(S);?OTHER FREQUENCY : ONCE;?
     Route: 048
     Dates: start: 20220217, end: 20220217
  2. VITAMINS [Concomitant]
     Active Substance: VITAMINS

REACTIONS (5)
  - Abdominal pain [None]
  - Impaired work ability [None]
  - Gastrointestinal motility disorder [None]
  - Confusional state [None]
  - Product contamination [None]

NARRATIVE: CASE EVENT DATE: 20220217
